FAERS Safety Report 4985666-X (Version None)
Quarter: 2006Q2

REPORT INFORMATION
  Report Type: 
  Country: None (occurrence: None)
  Receive Date: 20060421
  Receipt Date: 20060407
  Transmission Date: 20061013
  Serious: Yes (Other)
  Sender: FDA-Public Use
  Company Number: 2006BH007786

PATIENT
  Sex: Female

DRUGS (2)
  1. VINORELBINE TARTRATE [Suspect]
     Indication: BREAST CANCER
     Dosage: 25 MG/M**2
  2. GEMTACIBINE (NO PREF. NAME) [Suspect]
     Indication: BREAST CANCER
     Dosage: 1000 MG/M**2

REACTIONS (4)
  - CARDIAC FAILURE ACUTE [None]
  - DRUG TOXICITY [None]
  - FEBRILE NEUTROPENIA [None]
  - NEUTROPENIA [None]
